FAERS Safety Report 5193268-8 (Version None)
Quarter: 2006Q4

REPORT INFORMATION
  Report Type: 
  Country: None (occurrence: None)
  Receive Date: 20061228
  Receipt Date: 20060814
  Transmission Date: 20070319
  Serious: No
  Sender: FDA-Public Use
  Company Number: US-GLAXOSMITHKLINE-A0616510A

PATIENT
  Age: 86 Year
  Sex: Male

DRUGS (6)
  1. AVODART [Suspect]
     Indication: PROSTATE CANCER
     Dosage: .5MG PER DAY
     Route: 048
  2. NORVASC [Concomitant]
  3. GLIPIZIDE [Concomitant]
  4. CELEBREX [Concomitant]
  5. VITAMIN [Concomitant]
  6. SELENIUM SULFIDE [Concomitant]

REACTIONS (1)
  - CONSTIPATION [None]
